FAERS Safety Report 9564139 (Version 1)
Quarter: 2013Q3

REPORT INFORMATION
  Report Type: Spontaneous
  Country: US (occurrence: US)
  Receive Date: 20130929
  Receipt Date: 20130929
  Transmission Date: 20140515
  Serious: No
  Sender: FDA-Public Use
  Company Number: US-009507513-1309USA011623

PATIENT
  Sex: 0

DRUGS (2)
  1. EMEND [Suspect]
     Indication: VOMITING
     Dosage: 150 MG EVERY MONDAY-WEDNESDAY-FRIDAY
     Route: 042
  2. EMEND [Suspect]
     Indication: NAUSEA

REACTIONS (2)
  - Inappropriate schedule of drug administration [Unknown]
  - No adverse event [Unknown]
